FAERS Safety Report 4995297-3 (Version None)
Quarter: 2006Q2

REPORT INFORMATION
  Report Type: 
  Country: None (occurrence: None)
  Receive Date: 20060508
  Receipt Date: 20060428
  Transmission Date: 20061013
  Serious: Yes (Hospitalization)
  Sender: FDA-Public Use
  Company Number: US-MERCK-0605USA00064

PATIENT
  Age: 48 Year
  Sex: Male
  Weight: 118 kg

DRUGS (9)
  1. VIOXX [Suspect]
     Indication: ARTHRALGIA
     Route: 048
     Dates: start: 20010101, end: 20020201
  2. ZYPREXA [Concomitant]
     Route: 065
  3. PROZAC [Concomitant]
     Route: 065
  4. LIPITOR [Concomitant]
     Route: 065
  5. PRINIVIL [Concomitant]
     Route: 048
  6. ZESTRIL [Concomitant]
     Route: 065
  7. NOVOLIN [Concomitant]
     Route: 065
  8. IMDUR [Concomitant]
     Route: 065
  9. GLUCOPHAGE [Concomitant]
     Route: 065

REACTIONS (1)
  - MYOCARDIAL INFARCTION [None]
